FAERS Safety Report 5771830-9 (Version None)
Quarter: 2008Q2

REPORT INFORMATION
  Report Type: 
  Country: None (occurrence: None)
  Receive Date: 20080613
  Receipt Date: 20080609
  Transmission Date: 20081010
  Serious: Yes (Other)
  Sender: FDA-Public Use
  Company Number: A0731975A

PATIENT
  Age: 61 Year
  Sex: Female

DRUGS (6)
  1. LOVAZA [Suspect]
     Indication: BLOOD CHOLESTEROL INCREASED
     Dosage: 2G TWICE PER DAY
     Route: 048
     Dates: start: 20080401
  2. CARDIZEM [Concomitant]
  3. ALTACE [Concomitant]
  4. UNITHROID [Concomitant]
  5. VITAMIN D [Concomitant]
  6. CALCIUM [Concomitant]
     Dates: start: 20080401

REACTIONS (4)
  - ALANINE AMINOTRANSFERASE INCREASED [None]
  - BLOOD CHOLESTEROL INCREASED [None]
  - BLOOD GLUCOSE INCREASED [None]
  - BLOOD TRIGLYCERIDES INCREASED [None]
